FAERS Safety Report 7392548-5 (Version None)
Quarter: 2011Q1

REPORT INFORMATION
  Report Type: 
  Country: None (occurrence: None)
  Receive Date: 20110324
  Receipt Date: 20110302
  Transmission Date: 20110831
  Serious: Yes (Other)
  Sender: FDA-Public Use
  Company Number: US-001581

PATIENT
  Sex: Female
  Weight: 53.5244 kg

DRUGS (12)
  1. VITAMIN B1 TAB [Concomitant]
  2. ASPIRIN [Concomitant]
  3. VITAMIN B-12 [Concomitant]
  4. VITAMIN C /00008001/ [Concomitant]
  5. VITAMIN A [Concomitant]
  6. DILANTIN [Concomitant]
  7. NEXIUM [Concomitant]
  8. VITAMIN E /00110502/ [Concomitant]
  9. PLAVIX [Concomitant]
  10. PREDNISONE [Concomitant]
  11. LEXAPRO [Concomitant]
  12. KUVAN [Suspect]
     Indication: TETRAHYDROBIOPTERIN DEFICIENCY
     Dosage: (100 MG TID, ORAL)
     Route: 048
     Dates: start: 20090604

REACTIONS (1)
  - CEREBROVASCULAR ACCIDENT [None]
